FAERS Safety Report 20118781 (Version 1)
Quarter: 2021Q4

REPORT INFORMATION
  Report Type: Spontaneous
  Country: BE (occurrence: BE)
  Receive Date: 20211126
  Receipt Date: 20211126
  Transmission Date: 20220303
  Serious: Yes (Other)
  Sender: FDA-Public Use
  Company Number: BE-AMGEN-BELSP2021182322

PATIENT

DRUGS (2)
  1. ADALIMUMAB [Suspect]
     Active Substance: ADALIMUMAB
     Indication: Colitis ulcerative
     Dosage: UNK
     Route: 065
  2. ADALIMUMAB [Suspect]
     Active Substance: ADALIMUMAB
     Indication: Crohn^s disease

REACTIONS (31)
  - Bile duct stone [Unknown]
  - Lupus-like syndrome [Unknown]
  - Pancreatitis [Unknown]
  - Intestinal obstruction [Unknown]
  - Inflammatory bowel disease [Unknown]
  - Bile duct stenosis [Unknown]
  - Surgery [Unknown]
  - Sepsis [Unknown]
  - Tuberculosis [Unknown]
  - Staphylococcal sepsis [Unknown]
  - Gastrointestinal infection [Unknown]
  - Drug intolerance [Unknown]
  - Therapeutic response shortened [Unknown]
  - Therapy non-responder [Unknown]
  - Acne [Unknown]
  - Calculus urinary [Unknown]
  - Anal fissure [Unknown]
  - Herpes zoster reactivation [Unknown]
  - Skin lesion [Unknown]
  - Arthralgia [Unknown]
  - Vertigo [Unknown]
  - Oral herpes [Unknown]
  - Injection site reaction [Unknown]
  - Lower respiratory tract infection [Unknown]
  - Soft tissue infection [Unknown]
  - Skin infection [Unknown]
  - Upper respiratory tract infection [Unknown]
  - Urinary tract infection [Unknown]
  - Vulvovaginal mycotic infection [Unknown]
  - Viral infection [Unknown]
  - Hypersensitivity [Unknown]
